FAERS Safety Report 8819523 (Version 2)
Quarter: 2012Q4

REPORT INFORMATION
  Report Type: 
  Country: US (occurrence: US)
  Receive Date: 20120930
  Receipt Date: 20121017
  Transmission Date: 20130627
  Serious: No
  Sender: FDA-Public Use
  Company Number: US-ROXANE LABORATORIES, INC.-2012-RO-01815RO

PATIENT
  Sex: Male

DRUGS (1)
  1. OXCARBAZEPINE [Suspect]

REACTIONS (4)
  - Overdose [Unknown]
  - Hypersomnia [Unknown]
  - Medication residue [Unknown]
  - Product quality issue [Unknown]
